FAERS Safety Report 20664098 (Version 1)
Quarter: 2022Q2

REPORT INFORMATION
  Report Type: Spontaneous
  Country: GB (occurrence: GB)
  Receive Date: 20220401
  Receipt Date: 20220401
  Transmission Date: 20220721
  Serious: Yes (Other)
  Sender: FDA-Public Use
  Company Number: None

PATIENT
  Age: 63 Year
  Sex: Female
  Weight: 61.68 kg

DRUGS (2)
  1. DOXYCYCLINE HYCLATE [Suspect]
     Active Substance: DOXYCYCLINE HYCLATE
     Indication: Prophylaxis
     Dosage: 100MG
     Route: 048
     Dates: start: 20210615, end: 20210705
  2. DOXYCYCLINE HYCLATE [Suspect]
     Active Substance: DOXYCYCLINE HYCLATE
     Indication: Arthropod bite

REACTIONS (7)
  - Photosensitivity reaction [Recovering/Resolving]
  - Paraesthesia [Recovering/Resolving]
  - Body temperature fluctuation [Recovering/Resolving]
  - Feeling hot [Recovering/Resolving]
  - Lip blister [Recovering/Resolving]
  - Chills [Recovering/Resolving]
  - Sunburn [Recovering/Resolving]

NARRATIVE: CASE EVENT DATE: 20210619
